FAERS Safety Report 25280721 (Version 1)
Quarter: 2025Q2

REPORT INFORMATION
  Report Type: Report from Study
  Country: US (occurrence: US)
  Receive Date: 20250508
  Receipt Date: 20250508
  Transmission Date: 20250717
  Serious: Yes (Hospitalization)
  Sender: JAZZ
  Company Number: US-JAZZ PHARMACEUTICALS-2025-US-011068

PATIENT
  Sex: Female

DRUGS (1)
  1. EPIDIOLEX [Suspect]
     Active Substance: CANNABIDIOL
     Indication: Epilepsy
     Dosage: 1.7 MILLILITER, BID
     Route: 048
     Dates: start: 202308

REACTIONS (3)
  - Respiratory disorder [Unknown]
  - Seizure [Unknown]
  - Gastrointestinal disorder [Not Recovered/Not Resolved]
